FAERS Safety Report 7798154-2 (Version None)
Quarter: 2011Q4

REPORT INFORMATION
  Report Type: 
  Country: None (occurrence: None)
  Receive Date: 20111005
  Receipt Date: 20110104
  Transmission Date: 20120403
  Serious: Yes (Hospitalization)
  Sender: FDA-Public Use
  Company Number: US-BAYER-201014315NA

PATIENT
  Age: 30 Year
  Sex: Female
  Weight: 59.091 kg

DRUGS (5)
  1. YASMIN [Suspect]
     Indication: ORAL CONTRACEPTION
     Route: 048
     Dates: start: 20060101, end: 20060301
  2. YAZ [Suspect]
     Indication: ORAL CONTRACEPTION
     Route: 048
     Dates: start: 20060301, end: 20100101
  3. VALTREX [Concomitant]
     Indication: HERPES VIRUS INFECTION
  4. NSAID'S [Concomitant]
  5. ANTIBIOTICS [Concomitant]

REACTIONS (6)
  - CONSTIPATION [None]
  - ABDOMINAL PAIN [None]
  - ABDOMINAL DISTENSION [None]
  - UMBILICAL HERNIA, OBSTRUCTIVE [None]
  - DIARRHOEA [None]
  - CHOLECYSTITIS [None]
